FAERS Safety Report 5170769-X (Version None)
Quarter: 2006Q4

REPORT INFORMATION
  Report Type: 
  Country: None (occurrence: None)
  Receive Date: 20060919
  Receipt Date: 20060612
  Transmission Date: 20070319
  Serious: No
  Sender: FDA-Public Use
  Company Number: BDI-008323

PATIENT
  Age: 57 Year
  Sex: Male

DRUGS (8)
  1. MULTIHANCE [Suspect]
     Dosage: 20 ML ONCE IV
     Route: 042
     Dates: start: 20060610, end: 20060610
  2. OXYCONTIN [Concomitant]
  3. OXYCODONE HCL [Concomitant]
  4. TOPROL-XL [Concomitant]
  5. SENOKOT [Concomitant]
  6. NEUROTON [Concomitant]
  7. ASPIRIN [Concomitant]
  8. MULTI-VITAMIN [Concomitant]

REACTIONS (1)
  - HYPERSENSITIVITY [None]
